FAERS Safety Report 8204104-7 (Version None)
Quarter: 2012Q1

REPORT INFORMATION
  Report Type: 
  Country: None (occurrence: None)
  Receive Date: 20120313
  Receipt Date: 20120305
  Transmission Date: 20120608
  Serious: Yes (Other)
  Sender: FDA-Public Use
  Company Number: FR-UCBSA-052804

PATIENT
  Age: 74 Year
  Sex: Male

DRUGS (10)
  1. XANAX [Concomitant]
     Dosage: DAILY DOSE-0.25 MG
  2. ATORVASTATIN [Concomitant]
     Dosage: DAILY DOSE-10 MG
  3. POLYETHYLENE GLYCOL [Concomitant]
  4. ZOLPIDEM [Concomitant]
  5. ZOLOFT [Concomitant]
     Dosage: DAILY DOSE 50 MG
  6. PHENOBARBITAL TAB [Concomitant]
     Dosage: DAILY DOSE-100 MG
  7. SINTROM [Concomitant]
     Dates: end: 20120113
  8. POTASSIUM CHLORIDE [Concomitant]
  9. KEPPRA [Suspect]
     Indication: MYOCLONIC EPILEPSY
     Route: 042
     Dates: start: 20120129, end: 20120130
  10. KEPPRA [Suspect]
     Route: 048
     Dates: start: 20120130, end: 20120202

REACTIONS (3)
  - HYPOGLYCAEMIA [None]
  - HYPERHIDROSIS [None]
  - PALLOR [None]
